FAERS Safety Report 4311568-8 (Version None)
Quarter: 2004Q1

REPORT INFORMATION
  Report Type: 
  Country: None (occurrence: None)
  Receive Date: 20040303
  Receipt Date: 20040303
  Transmission Date: 20041129
  Serious: Yes (Other)
  Sender: FDA-Public Use
  Company Number: None

PATIENT
  Age: 55 Year
  Sex: Female
  Weight: 77.1115 kg

DRUGS (2)
  1. NARDIL [Suspect]
     Indication: ANXIETY
     Dosage: 3 DAY ORAL
     Route: 048
     Dates: start: 20031101, end: 20040302
  2. NARDIL [Suspect]
     Indication: DEPRESSION
     Dosage: 3 DAY ORAL
     Route: 048
     Dates: start: 20031101, end: 20040302

REACTIONS (7)
  - DIARRHOEA [None]
  - DRUG EFFECT DECREASED [None]
  - DYSGEUSIA [None]
  - ERUCTATION [None]
  - NAUSEA [None]
  - PHARMACEUTICAL PRODUCT COMPLAINT [None]
  - VOMITING [None]
